FAERS Safety Report 7039434-8 (Version None)
Quarter: 2010Q4

REPORT INFORMATION
  Report Type: 
  Country: None (occurrence: None)
  Receive Date: 20101012
  Receipt Date: 20101004
  Transmission Date: 20110411
  Serious: Yes (Hospitalization)
  Sender: FDA-Public Use
  Company Number: US-ROCHE-722910

PATIENT
  Sex: Male
  Weight: 72.6 kg

DRUGS (6)
  1. PEGASYS [Suspect]
     Dosage: RECEIVED ONLY ONE INJECTION
     Route: 058
     Dates: start: 20100811
  2. RIBAVARIN [Suspect]
     Route: 048
     Dates: start: 20100811
  3. CELEXA [Concomitant]
  4. LISINOPRIL [Concomitant]
  5. OMEPRAZOLE [Concomitant]
  6. NEURONTIN [Concomitant]

REACTIONS (4)
  - HEART RATE DECREASED [None]
  - NEUTROPENIA [None]
  - SYNCOPE [None]
  - THROMBOCYTOPENIA [None]
